FAERS Safety Report 8068258-8 (Version None)
Quarter: 2012Q1

REPORT INFORMATION
  Report Type: 
  Country: None (occurrence: None)
  Receive Date: 20120124
  Receipt Date: 20111010
  Transmission Date: 20120608
  Serious: No
  Sender: FDA-Public Use
  Company Number: US-AMGEN-USASP2011052251

PATIENT
  Sex: Female

DRUGS (8)
  1. ACIPHEX [Concomitant]
     Indication: GASTROOESOPHAGEAL REFLUX DISEASE
  2. CELEBREX [Concomitant]
     Indication: ARTHRALGIA
  3. MULTIVITAMIN                       /00097801/ [Concomitant]
  4. PREDNISONE [Concomitant]
     Indication: INFLAMMATION
  5. ALAVERT ALLERGY + SINUS D-12 [Concomitant]
  6. PROLIA [Suspect]
     Indication: OSTEOPOROSIS POSTMENOPAUSAL
     Dosage: 60 MG, Q6MO
     Dates: start: 20110516
  7. CALCIUM WITH VITAMIN D             /00944201/ [Concomitant]
  8. ACYCLOVIR [Concomitant]

REACTIONS (2)
  - TOOTH INFECTION [None]
  - FOREIGN BODY [None]
